FAERS Safety Report 10589816 (Version 2)
Quarter: 2014Q4

REPORT INFORMATION
  Report Type: Spontaneous
  Country: GB (occurrence: GB)
  Receive Date: 20141118
  Receipt Date: 20141118
  Transmission Date: 20150529
  Serious: Yes (Death, Other)
  Sender: FDA-Public Use
  Company Number: PHFR2014GB007187

PATIENT
  Age: 82 Year
  Sex: Male

DRUGS (2)
  1. CLOZARIL [Suspect]
     Active Substance: CLOZAPINE
     Indication: PSYCHOTIC DISORDER
     Dosage: UNK
     Route: 048
     Dates: start: 20110131, end: 20141010
  2. CLOZARIL [Suspect]
     Active Substance: CLOZAPINE
     Indication: PARKINSON^S DISEASE

REACTIONS (4)
  - Neuroleptic malignant syndrome [Unknown]
  - White blood cell count increased [Unknown]
  - Death [Fatal]
  - Neutrophil count increased [Unknown]

NARRATIVE: CASE EVENT DATE: 20140929
